FAERS Safety Report 7818484-5 (Version None)
Quarter: 2011Q4

REPORT INFORMATION
  Report Type: 
  Country: None (occurrence: None)
  Receive Date: 20111017
  Receipt Date: 20111010
  Transmission Date: 20120403
  Serious: Yes (Other)
  Sender: FDA-Public Use
  Company Number: DK-B.I. PHARMACEUTICALS,INC./RIDGEFIELD-2011-SW-00410DB

PATIENT
  Sex: Female

DRUGS (1)
  1. PRADAXA [Suspect]
     Indication: HYPERCOAGULATION
     Dosage: 300 MG
     Route: 048
     Dates: start: 20110110, end: 20110210

REACTIONS (1)
  - ANGIOEDEMA [None]
